FAERS Safety Report 10146809 (Version 1)
Quarter: 2014Q2

REPORT INFORMATION
  Report Type: Spontaneous
  Country: US (occurrence: None)
  Receive Date: 20140430
  Receipt Date: 20140430
  Transmission Date: 20141212
  Serious: No
  Sender: FDA-Public Use
  Company Number: None

PATIENT
  Age: 94 Year
  Sex: Female

DRUGS (5)
  1. WARFARIN [Suspect]
     Indication: ATRIAL FIBRILLATION
     Dosage: 4 MG OR 5 MG (ALTERNATING
     Route: 048
     Dates: end: 20110921
  2. FENTANYL [Concomitant]
  3. MIDAZOLAM [Concomitant]
  4. LIDOCAINE [Concomitant]
  5. BIVALIRUDIN [Concomitant]

REACTIONS (3)
  - Chest pain [None]
  - Haematoma [None]
  - Post procedural complication [None]
